FAERS Safety Report 5114806-7 (Version None)
Quarter: 2006Q3

REPORT INFORMATION
  Report Type: 
  Country: None (occurrence: None)
  Receive Date: 20060921
  Receipt Date: 20060913
  Transmission Date: 20061208
  Serious: Yes (Death)
  Sender: FDA-Public Use
  Company Number: 2006VX001337

PATIENT
  Age: 48 Year
  Sex: Male

DRUGS (4)
  1. CESAMET [Suspect]
     Indication: INSOMNIA
     Dosage: SEE IMAGE
     Route: 048
     Dates: end: 20060301
  2. CESAMET [Suspect]
     Indication: PAIN
     Dosage: SEE IMAGE
     Route: 048
     Dates: end: 20060301
  3. TYLENOL W/ CODEINE NO. 3 [Suspect]
     Indication: INSOMNIA
  4. TYLENOL W/ CODEINE NO. 3 [Suspect]
     Indication: PAIN

REACTIONS (3)
  - COMPLETED SUICIDE [None]
  - EUPHORIC MOOD [None]
  - INJURY ASPHYXIATION [None]
